FAERS Safety Report 23538484 (Version 3)
Quarter: 2024Q1

REPORT INFORMATION
  Report Type: Spontaneous
  Country: US (occurrence: US)
  Receive Date: 20240219
  Receipt Date: 20240312
  Transmission Date: 20240410
  Serious: No
  Sender: FDA-Public Use
  Company Number: US-PFIZER INC-202400040784

PATIENT
  Age: 54 Year
  Sex: Male
  Weight: 92.971 kg

DRUGS (3)
  1. PAXLOVID [Suspect]
     Active Substance: NIRMATRELVIR\RITONAVIR
     Indication: COVID-19 treatment
     Dosage: UNK UNK, 2X/DAY
     Dates: start: 20240204, end: 20240208
  2. ROSUVASTATIN CALCIUM TEVA [Concomitant]
     Dosage: UNK
     Dates: start: 20240108, end: 20240204
  3. CETIRIZINE HCL Berkeley Jensen [Concomitant]
     Dosage: UNK
     Dates: start: 20120201

REACTIONS (2)
  - COVID-19 [Recovered/Resolved]
  - Disease recurrence [Recovered/Resolved]

NARRATIVE: CASE EVENT DATE: 20240212
